FAERS Safety Report 20193661 (Version 1)
Quarter: 2021Q4

REPORT INFORMATION
  Report Type: Spontaneous
  Country: US (occurrence: None)
  Receive Date: 20211216
  Receipt Date: 20211216
  Transmission Date: 20220304
  Serious: Yes (Hospitalization)
  Sender: FDA-Public Use
  Company Number: None

PATIENT
  Sex: Male
  Weight: 94.5 kg

DRUGS (7)
  1. CYCLOPHOSPHAMIDE [Suspect]
     Active Substance: CYCLOPHOSPHAMIDE
  2. CYTARABINE [Concomitant]
  3. MERCAPTOPURINE [Suspect]
     Active Substance: MERCAPTOPURINE
  4. METHOTREXATE [Concomitant]
     Active Substance: METHOTREXATE
  5. ONCASPAR [Concomitant]
     Active Substance: PEGASPARGASE
  6. RITUXIMAB (MOAB C2B8 ANTI CD20, CHIMERIC) [Concomitant]
  7. VINCRISTINE SULFATE [Concomitant]
     Active Substance: VINCRISTINE SULFATE

REACTIONS (12)
  - Fall [None]
  - Loss of consciousness [None]
  - Overdose [None]
  - Agonal respiration [None]
  - Seizure [None]
  - Tachycardia [None]
  - Drug screen positive [None]
  - Substance use [None]
  - Blood bicarbonate decreased [None]
  - Blood lactic acid increased [None]
  - Neutropenia [None]
  - Meningitis [None]

NARRATIVE: CASE EVENT DATE: 20211212
